FAERS Safety Report 7049566-6 (Version None)
Quarter: 2010Q4

REPORT INFORMATION
  Report Type: 
  Country: None (occurrence: None)
  Receive Date: 20101018
  Receipt Date: 20101007
  Transmission Date: 20110411
  Serious: No
  Sender: FDA-Public Use
  Company Number: US-ROXANE LABORATORIES, INC.-2010-RO-01340RO

PATIENT
  Age: 65 Year
  Sex: Female

DRUGS (3)
  1. METHADONE [Suspect]
     Indication: FIBROMYALGIA
     Dosage: 20 MG
     Route: 048
  2. METHADONE [Suspect]
     Dosage: 2.5 MG
     Route: 048
     Dates: start: 20100901
  3. TRAZODONE HCL [Concomitant]
     Indication: ANXIETY
     Dosage: 200 MG
     Route: 048

REACTIONS (3)
  - DRY MOUTH [None]
  - INSOMNIA [None]
  - TOOTH DISORDER [None]
